FAERS Safety Report 9422998 (Version 1)
Quarter: 2013Q3

REPORT INFORMATION
  Report Type: Spontaneous
  Country: US (occurrence: US)
  Receive Date: 20130726
  Receipt Date: 20130726
  Transmission Date: 20140515
  Serious: Yes (Hospitalization)
  Sender: FDA-Public Use
  Company Number: US-GLAXOSMITHKLINE-A0815501A

PATIENT
  Age: 67 Year
  Sex: Female

DRUGS (1)
  1. AVANDIA [Suspect]
     Indication: TYPE 2 DIABETES MELLITUS
     Dosage: 4MG TWICE PER DAY
     Route: 048
     Dates: start: 2001, end: 2007

REACTIONS (6)
  - Cardiac failure congestive [Not Recovered/Not Resolved]
  - Cerebrovascular accident [Unknown]
  - Blindness unilateral [Unknown]
  - Hypertension [Unknown]
  - Coronary artery disease [Unknown]
  - Cardiovascular disorder [Unknown]
